FAERS Safety Report 5661657-0 (Version None)
Quarter: 2008Q1

REPORT INFORMATION
  Report Type: 
  Country: None (occurrence: None)
  Receive Date: 20080311
  Receipt Date: 20080305
  Transmission Date: 20080703
  Serious: No
  Sender: FDA-Public Use
  Company Number: US-BAXTER-2008BH002019

PATIENT
  Age: 50 Year
  Sex: Male
  Weight: 143 kg

DRUGS (19)
  1. HEPARIN SODIUM [Suspect]
     Indication: PROPHYLAXIS
     Dosage: DOSE UNIT:CUBIC CENTIMETER
     Route: 065
  2. HEPARIN SODIUM [Suspect]
     Dosage: DOSE UNIT:CUBIC CENTIMETER
     Route: 065
  3. VITAMIN D [Concomitant]
     Indication: VITAMIN SUPPLEMENTATION
     Route: 048
  4. ATACAND [Concomitant]
     Indication: BLOOD PRESSURE
     Route: 048
  5. ALTACE [Concomitant]
     Indication: BLOOD PRESSURE
     Route: 048
     Dates: end: 20071201
  6. MINOXIDIL [Concomitant]
     Indication: BLOOD PRESSURE
     Route: 048
     Dates: end: 20071101
  7. COREG [Concomitant]
     Route: 048
  8. PLAVIX [Concomitant]
     Route: 048
  9. ASPIRIN [Concomitant]
     Route: 048
  10. LORAZEPAM [Concomitant]
     Indication: DEPRESSION
     Route: 048
  11. SODIUM BICARBONATE [Concomitant]
     Indication: DIALYSIS
     Dosage: DOSE UNIT:UNKNOWN
     Route: 048
  12. FISH OIL [Concomitant]
     Indication: SUPPLEMENTATION THERAPY
     Route: 048
  13. ASCORBIC ACID [Concomitant]
     Indication: VITAMIN SUPPLEMENTATION
     Route: 048
  14. STOOL SOFTENER [Concomitant]
     Indication: CONSTIPATION
     Dosage: DOSE UNIT:UNKNOWN
     Route: 048
  15. HYDROCODONE BITARTRATE [Concomitant]
     Indication: PAIN IN EXTREMITY
     Route: 048
  16. NOVOLIN 50/50 [Concomitant]
     Indication: DIABETES MELLITUS
     Route: 065
  17. ALPHA LIPOIC ACID [Concomitant]
     Indication: PERITONEAL DIALYSIS
     Route: 048
  18. WELCHOL [Concomitant]
     Indication: BLOOD CHOLESTEROL
     Route: 048
  19. NOVOLOG MIX 70/30 [Concomitant]
     Indication: PERITONEAL DIALYSIS
     Route: 065

REACTIONS (4)
  - CELLULITIS [None]
  - DIZZINESS [None]
  - HYPERHIDROSIS [None]
  - HYPOTENSION [None]
